FAERS Safety Report 6706586-6 (Version None)
Quarter: 2010Q2

REPORT INFORMATION
  Report Type: 
  Country: None (occurrence: None)
  Receive Date: 20100503
  Receipt Date: 20100426
  Transmission Date: 20101027
  Serious: Yes (Hospitalization)
  Sender: FDA-Public Use
  Company Number: JP-ROCHE-684663

PATIENT
  Sex: Female
  Weight: 51 kg

DRUGS (23)
  1. TOCILIZUMAB [Suspect]
     Indication: RHEUMATOID ARTHRITIS
     Route: 041
     Dates: start: 20090408, end: 20090408
  2. TOCILIZUMAB [Suspect]
     Route: 041
     Dates: start: 20090507, end: 20090507
  3. TOCILIZUMAB [Suspect]
     Route: 041
     Dates: start: 20090604, end: 20090604
  4. TOCILIZUMAB [Suspect]
     Route: 041
     Dates: start: 20090702, end: 20090702
  5. TOCILIZUMAB [Suspect]
     Route: 041
     Dates: start: 20090730, end: 20090730
  6. TOCILIZUMAB [Suspect]
     Route: 041
     Dates: start: 20090826, end: 20090826
  7. TOCILIZUMAB [Suspect]
     Dosage: STOP DATE: 2009
     Route: 041
     Dates: start: 20090924
  8. TOCILIZUMAB [Suspect]
     Dosage: DOSAGE UNCERTAIN
     Route: 041
     Dates: start: 20091216, end: 20091216
  9. TOCILIZUMAB [Suspect]
     Dosage: DOSAGE UNCERTAIN
     Route: 041
     Dates: start: 20100129, end: 20100129
  10. TOCILIZUMAB [Suspect]
     Dosage: DOSAGE UNCERTAIN
     Route: 041
     Dates: start: 20100226
  11. PROGRAF [Concomitant]
     Route: 048
  12. PROGRAF [Concomitant]
     Dosage: DRUG REPORTED AS: PROGRAF(TACROLIMS HYDRATE)
     Route: 048
     Dates: start: 20100126
  13. PREDNISOLONE [Concomitant]
     Route: 048
  14. LOXONIN [Concomitant]
     Dosage: DRUG REPORTED AS: LOXONIN(LOXOPROFEN SODIUM)
     Route: 048
  15. METHYCOBAL [Concomitant]
     Route: 048
  16. METHYCOBAL [Concomitant]
     Route: 048
  17. MUCOSTA [Concomitant]
     Route: 048
  18. VOLTAREN [Concomitant]
     Dosage: DRUG: VOLTAREN(DICLOFENAC SODIUM) DOSE FORM: SUPPOSITORIAE RECTALE NOTE: TAKEN AS NEEDED
     Route: 054
  19. KETOPROFEN [Concomitant]
     Dosage: DOSE FORM: TAPE NOTE: TAKEN AS NEEDED
     Route: 061
  20. GLUFAST [Concomitant]
     Dosage: DRUG REPORTED AS: GLUFAST(MITIGLINIDE CALCIUM HYDRATE)
     Route: 048
  21. LIPITOR [Concomitant]
     Dosage: DRUG REPORTED AS: LIPITOR(ATORVASTATIN CALCIUM)
     Route: 048
  22. MICARDIS [Concomitant]
     Route: 048
  23. MICARDIS [Concomitant]
     Route: 048

REACTIONS (1)
  - ALTERED STATE OF CONSCIOUSNESS [None]
